FAERS Safety Report 7371695-8 (Version None)
Quarter: 2011Q1

REPORT INFORMATION
  Report Type: 
  Country: None (occurrence: None)
  Receive Date: 20110324
  Receipt Date: 20110221
  Transmission Date: 20110831
  Serious: Yes (Hospitalization)
  Sender: FDA-Public Use
  Company Number: GB-ASTRAZENECA-2011SE16323

PATIENT
  Sex: Female
  Weight: 64 kg

DRUGS (5)
  1. ACETAMINOPHEN AND CODEINE PHOSPHATE [Suspect]
     Indication: PAIN
     Dosage: 30/500, TWO TABLETS AS NEEDED
     Dates: start: 20090106
  2. FOLIC ACID [Suspect]
     Indication: PREGNANCY
     Dates: start: 20090501
  3. HYDROXOCOBALAMIN [Suspect]
     Indication: VITAMIN B12 DEFICIENCY
     Dates: start: 20091216
  4. OMEPRAZOLE [Suspect]
     Route: 048
     Dates: start: 20081016
  5. LYRICA [Suspect]
     Indication: PAIN
     Dates: start: 20080815

REACTIONS (5)
  - PELVIC PAIN [None]
  - ANTEPARTUM HAEMORRHAGE [None]
  - FORCEPS DELIVERY [None]
  - INFECTION [None]
  - DRUG EXPOSURE DURING PREGNANCY [None]
